FAERS Safety Report 5911997-2 (Version None)
Quarter: 2008Q4

REPORT INFORMATION
  Report Type: 
  Country: None (occurrence: None)
  Receive Date: 20081008
  Receipt Date: 20081006
  Transmission Date: 20090506
  Serious: Yes (Death)
  Sender: FDA-Public Use
  Company Number: PHEH2008US02782

PATIENT
  Sex: Male

DRUGS (2)
  1. EXJADE [Suspect]
     Indication: LYMPHOPROLIFERATIVE DISORDER
     Dosage: 1000 MG, QD
     Route: 048
     Dates: start: 20070925
  2. CHEMOTHERAPEUTICS NOS [Suspect]

REACTIONS (3)
  - ACUTE MYELOID LEUKAEMIA [None]
  - SEPTIC SHOCK [None]
  - STEM CELL TRANSPLANT [None]
